FAERS Safety Report 18139270 (Version 1)
Quarter: 2020Q3

REPORT INFORMATION
  Report Type: Spontaneous
  Country: CA (occurrence: CA)
  Receive Date: 20200812
  Receipt Date: 20200812
  Transmission Date: 20201103
  Serious: Yes (Disabling)
  Sender: FDA-Public Use
  Company Number: CA-ACCORD-195167

PATIENT
  Age: 31 Year
  Sex: Female

DRUGS (1)
  1. TOPIRAMATE. [Suspect]
     Active Substance: TOPIRAMATE
     Indication: SEIZURE
     Dosage: 2 EVERY 1 DAYS
     Route: 048

REACTIONS (3)
  - Amnesia [Recovered/Resolved]
  - Aphasia [Recovered/Resolved]
  - Product substitution issue [Unknown]
